FAERS Safety Report 24868462 (Version 1)
Quarter: 2025Q1

REPORT INFORMATION
  Report Type: Spontaneous
  Country: US (occurrence: None)
  Receive Date: 20250119
  Receipt Date: 20250119
  Transmission Date: 20250409
  Serious: Yes (Hospitalization)
  Sender: FDA-CTU
  Company Number: None

PATIENT
  Age: 72 Year
  Sex: Male
  Weight: 81 kg

DRUGS (6)
  1. IMURAN [Suspect]
     Active Substance: AZATHIOPRINE
     Indication: Colitis
     Dosage: FREQUENCY : DAILY;?
     Route: 048
     Dates: start: 20241214, end: 20250113
  2. MESALAMINE [Suspect]
     Active Substance: MESALAMINE
  3. Famidodine [Concomitant]
  4. Nexeum [Concomitant]
  5. CALCIUM\CHOLECALCIFEROL [Concomitant]
     Active Substance: CALCIUM\CHOLECALCIFEROL
  6. Areds2 [Concomitant]

REACTIONS (4)
  - Chills [None]
  - Fatigue [None]
  - Dyspnoea [None]
  - Pancreatitis acute [None]

NARRATIVE: CASE EVENT DATE: 20250113
